FAERS Safety Report 18762366 (Version 1)
Quarter: 2021Q1

REPORT INFORMATION
  Report Type: Spontaneous
  Country: US (occurrence: US)
  Receive Date: 20210119
  Receipt Date: 20210119
  Transmission Date: 20210419
  Serious: No
  Sender: FDA-Public Use
  Company Number: None

PATIENT
  Sex: Male

DRUGS (13)
  1. ELIQUIS [Concomitant]
     Active Substance: APIXABAN
  2. JANUVIA [Concomitant]
     Active Substance: SITAGLIPTIN PHOSPHATE
  3. LINZESS [Concomitant]
     Active Substance: LINACLOTIDE
  4. ROSUVASTION [Concomitant]
  5. TAMSULISONS [Concomitant]
  6. TOVIAZ [Concomitant]
     Active Substance: FESOTERODINE FUMARATE
  7. AMODARONE [Concomitant]
  8. BASAGLER [Concomitant]
  9. PANTOPRAOLE [Concomitant]
  10. GLIPIZIDE. [Concomitant]
     Active Substance: GLIPIZIDE
  11. VYNDAMAX [Suspect]
     Active Substance: TAFAMIDIS
     Indication: PROSTATOMEGALY
     Route: 048
     Dates: start: 20201022
  12. BUMETADINE [Concomitant]
     Active Substance: BUMETANIDE
  13. CYCLOSPORINE. [Concomitant]
     Active Substance: CYCLOSPORINE

REACTIONS (2)
  - Hospitalisation [None]
  - Therapy interrupted [None]
